FAERS Safety Report 15101893 (Version 1)
Quarter: 2018Q3

REPORT INFORMATION
  Report Type: Spontaneous
  Country: US (occurrence: US)
  Receive Date: 20180703
  Receipt Date: 20180703
  Transmission Date: 20181010
  Serious: No
  Sender: FDA-Public Use
  Company Number: US-SA-2018SA169381

PATIENT

DRUGS (1)
  1. AMBIEN [Suspect]
     Active Substance: ZOLPIDEM TARTRATE
     Route: 065

REACTIONS (12)
  - Chills [Unknown]
  - Paraesthesia [Unknown]
  - Pruritus [Unknown]
  - Somnolence [Unknown]
  - Formication [Unknown]
  - Tinnitus [Unknown]
  - Confusional state [Unknown]
  - Hypoaesthesia [Unknown]
  - Chest discomfort [Unknown]
  - Burning sensation [Unknown]
  - Constipation [Unknown]
  - Hypoacusis [Unknown]
